FAERS Safety Report 7945935 (Version 2)
Quarter: 2013Q1

REPORT INFORMATION
  Report Type: Spontaneous
  Country: JP (occurrence: JP)
  Receive Date: 20110516
  Receipt Date: 20130107
  Transmission Date: 20140127
  Serious: Yes (Hospitalization, Other)
  Sender: FDA-Public Use
  Company Number: JP-SANOFI-AVENTIS-2011SA029424

PATIENT
  Age: 57 Year
  Sex: Male
  Weight: 51.1 kg

DRUGS (18)
  1. DOCETAXEL [Suspect]
     Indication: TONSIL CANCER
     Dosage: -THE PATIENT RECIEVED 80 MG/BODY, ON DAY 1?-RECIEVED THE FIRST COURSE OF CHEMOTHERAPY ON 12 FEB.
     Route: 065
  2. DOCETAXEL [Suspect]
     Indication: OESOPHAGEAL CARCINOMA
     Dosage: -THE PATIENT RECIEVED 80 MG/BODY, ON DAY 1?-RECIEVED THE FIRST COURSE OF CHEMOTHERAPY ON 12 FEB.
     Route: 065
  3. DOCETAXEL [Suspect]
     Indication: TONSIL CANCER
     Dosage: SECOND COURSE, RECEIVED ON DAY 1
     Route: 065
     Dates: start: 201003
  4. DOCETAXEL [Suspect]
     Indication: OESOPHAGEAL CARCINOMA
     Dosage: SECOND COURSE, RECEIVED ON DAY 1
     Route: 065
     Dates: start: 201003
  5. NEDAPLATIN [Suspect]
     Indication: TONSIL CANCER
     Dosage: THE PATIENT RECIEVED THE SECOND COURSE OF CHEMOTHERAPY ON DAY 1.?120 MG/BODY
     Route: 065
     Dates: start: 201003
  6. NEDAPLATIN [Suspect]
     Indication: OESOPHAGEAL CARCINOMA
     Dosage: THE PATIENT RECIEVED THE SECOND COURSE OF CHEMOTHERAPY ON DAY 1.?120 MG/BODY
     Route: 065
     Dates: start: 201003
  7. NEDAPLATIN [Suspect]
     Indication: TONSIL CANCER
     Dosage: DOSAGE REPORTED: 120MG PER BODY?THERAPY DATE: FEBRUARY 12.?RECEIVED ON DAY 1
     Route: 065
  8. NEDAPLATIN [Suspect]
     Indication: OESOPHAGEAL CARCINOMA
     Dosage: DOSAGE REPORTED: 120MG PER BODY?THERAPY DATE: FEBRUARY 12.?RECEIVED ON DAY 1
     Route: 065
  9. THERAPEUTIC RADIOPHARMACEUTICALS [Suspect]
     Indication: TONSIL CANCER
     Dosage: FROM FEB 16 TO APRIL 2?69.2 GY, 58 FR
     Route: 065
     Dates: start: 201003
  10. THERAPEUTIC RADIOPHARMACEUTICALS [Suspect]
     Indication: OESOPHAGEAL CARCINOMA
     Dosage: FROM FEB 16 TO APRIL 2?69.2 GY, 58 FR
     Route: 065
     Dates: start: 201003
  11. ISONIAZID [Concomitant]
     Indication: PULMONARY TUBERCULOSIS
     Dates: start: 200911
  12. ISONIAZID [Concomitant]
     Indication: PULMONARY TUBERCULOSIS
     Dates: start: 201001
  13. RIFAMPICIN [Concomitant]
     Indication: PULMONARY TUBERCULOSIS
     Dates: start: 200911
  14. RIFAMPICIN [Concomitant]
     Indication: PULMONARY TUBERCULOSIS
     Dates: start: 201001
  15. ETHAMBUTOL [Concomitant]
     Indication: PULMONARY TUBERCULOSIS
     Dates: start: 200911
  16. ETHAMBUTOL [Concomitant]
     Indication: PULMONARY TUBERCULOSIS
     Dates: start: 201001
  17. PYRAZINAMIDE [Concomitant]
     Indication: PULMONARY TUBERCULOSIS
     Dates: start: 200911
  18. PYRAZINAMIDE [Concomitant]
     Indication: PULMONARY TUBERCULOSIS
     Dates: start: 201001

REACTIONS (10)
  - Pneumatosis intestinalis [Recovered/Resolved]
  - Diarrhoea [Recovered/Resolved]
  - Gastrointestinal disorder [Recovered/Resolved]
  - Ileus [Recovered/Resolved]
  - Gastrointestinal disorder [Recovered/Resolved]
  - Vomiting [Recovered/Resolved]
  - Leukopenia [Unknown]
  - C-reactive protein increased [Unknown]
  - Neutropenia [Unknown]
  - Pyrexia [Unknown]
